FAERS Safety Report 9123538 (Version 1)
Quarter: 2013Q1

REPORT INFORMATION
  Report Type: Spontaneous
  Country: US (occurrence: US)
  Receive Date: 20130115
  Receipt Date: 20130115
  Transmission Date: 20140127
  Serious: Yes (Hospitalization, Other)
  Sender: FDA-Public Use
  Company Number: US-BRISTOL-MYERS SQUIBB COMPANY-17267485

PATIENT
  Age: 86 Year
  Sex: Female

DRUGS (2)
  1. ABILIFY [Suspect]
     Indication: ANXIETY
     Dates: start: 201210
  2. ATIVAN [Suspect]
     Indication: ANXIETY
     Dates: start: 201210

REACTIONS (3)
  - Lethargy [Unknown]
  - Urinary tract infection [Unknown]
  - Syncope [Unknown]
